FAERS Safety Report 10710575 (Version 1)
Quarter: 2015Q1

REPORT INFORMATION
  Report Type: Spontaneous
  Country: US (occurrence: None)
  Receive Date: 20150112
  Receipt Date: 20150112
  Transmission Date: 20150721
  Serious: Yes (Other)
  Sender: FDA-Public Use
  Company Number: US-H14001-15-00019

PATIENT
  Age: 24 Year
  Sex: Female

DRUGS (13)
  1. IDARUBICIN (IDARUBICIN) [Concomitant]
  2. PREDNISONE (PREDNISONE) [Suspect]
     Active Substance: PREDNISONE
     Indication: PRODUCT USED FOR UNKNOWN INDICATION
     Dosage: UNKNOWN ON DAYS 21,23,25 AND 27.
  3. DEXAMETHASONE. [Suspect]
     Active Substance: DEXAMETHASONE
     Indication: MATERNAL THERAPY TO ENHANCE FOETAL LUNG MATURITY
  4. PACKED RED BLOOD CELL (RED BLOOD CELLS) [Concomitant]
  5. METOPROLOL (METOPROLOL) [Suspect]
     Active Substance: METOPROLOL
     Indication: ARRHYTHMIA PROPHYLAXIS
     Dosage: DOSE INCREASED
  6. METOPROLOL (METOPROLOL) [Suspect]
     Active Substance: METOPROLOL
     Indication: CARDIOMYOPATHY
     Dosage: DOSE INCREASED
  7. ATRA (TRETINOIN) [Concomitant]
  8. PLATELET ((DIPYRIDAMOLE) [Concomitant]
  9. PREDNISONE (PREDNISONE) [Suspect]
     Active Substance: PREDNISONE
     Indication: MYOCARDITIS
     Dosage: UNKNOWN ON DAYS 21,23,25 AND 27.
  10. ANGIOTENSIN - CONVERTIN ENZYME INHIBITOR (ACE INHIBITORS) [Concomitant]
  11. HYDRALAZINE (HYDRALAZINE) [Concomitant]
     Active Substance: HYDRALAZINE HYDROCHLORIDE
  12. FUROSEMIDE (FUROSEMIDE) [Suspect]
     Active Substance: FUROSEMIDE
  13. ISOSORBIDE DINITRATE (ISOSORBIDE DINITRATE) [Concomitant]

REACTIONS (9)
  - Premature delivery [None]
  - Exposure during pregnancy [None]
  - Cardiomyopathy [None]
  - Hyperglycaemia [None]
  - Atrial fibrillation [None]
  - Bacteraemia [None]
  - Induced labour [None]
  - Myocarditis [None]
  - Cardiotoxicity [None]
